FAERS Safety Report 4444566-4 (Version None)
Quarter: 2004Q3

REPORT INFORMATION
  Report Type: 
  Country: None (occurrence: None)
  Receive Date: 20040902
  Receipt Date: 20040826
  Transmission Date: 20050211
  Serious: Yes (Hospitalization)
  Sender: FDA-Public Use
  Company Number: 001-0981-M0003510

PATIENT
  Age: 71 Year
  Sex: Male
  Weight: 80.2867 kg

DRUGS (7)
  1. ATORVASTATIN (ATORVASTATIN) [Suspect]
     Indication: CORONARY ARTERY DISEASE
     Dosage: 10 MG (10 MG, 1 IN 1 D), ORAL
     Route: 048
     Dates: start: 19990420, end: 19990620
  2. ASPIRIN [Concomitant]
  3. ATENOLOL [Concomitant]
  4. DEXTROPROPOXYPHENE NAPSILATE (DEXTROPROPOXYPHENE NAPSILATE) [Concomitant]
  5. MULTIVITAMINS (ASCORBIC ACID, ERGOCALCIFEROL, FOLIC ACID, NICOTINAMIDE [Concomitant]
  6. TOCOPHEROL CONCENTRATE CAP [Concomitant]
  7. VALSARTAN (VALSARTAN) [Concomitant]

REACTIONS (2)
  - INTERSTITIAL LUNG DISEASE [None]
  - OBLITERATIVE BRONCHIOLITIS [None]
